FAERS Safety Report 6362669-4 (Version None)
Quarter: 2009Q3

REPORT INFORMATION
  Report Type: 
  Country: None (occurrence: None)
  Receive Date: 20090919
  Receipt Date: 20090714
  Transmission Date: 20100115
  Serious: Yes (Hospitalization)
  Sender: FDA-Public Use
  Company Number: US-ABBOTT-09P-163-0578551-00

PATIENT
  Sex: Female
  Weight: 76.726 kg

DRUGS (8)
  1. HUMIRA [Suspect]
     Indication: CROHN'S DISEASE
     Dates: start: 20090417, end: 20090417
  2. HUMIRA [Suspect]
  3. HUMIRA [Suspect]
     Dates: end: 20090529
  4. HUMIRA [Suspect]
     Dates: start: 20090715
  5. PREDNISONE [Concomitant]
     Indication: DRUG USE FOR UNKNOWN INDICATION
     Dates: start: 20080601, end: 20090506
  6. PENTASA [Concomitant]
     Indication: DRUG USE FOR UNKNOWN INDICATION
  7. LOMOTIL [Concomitant]
     Indication: DRUG USE FOR UNKNOWN INDICATION
     Route: 048
     Dates: start: 20090713
  8. PHENERGAN [Concomitant]
     Indication: DRUG USE FOR UNKNOWN INDICATION
     Route: 048

REACTIONS (2)
  - CROHN'S DISEASE [None]
  - DRUG DOSE OMISSION [None]
